FAERS Safety Report 21089227 (Version 2)
Quarter: 2022Q3

REPORT INFORMATION
  Report Type: Report from Study
  Country: US (occurrence: None)
  Receive Date: 20220715
  Receipt Date: 20220809
  Transmission Date: 20221027
  Serious: Yes (Hospitalization, Other)
  Sender: FDA-Public Use
  Company Number: US-ROCHE-3116078

PATIENT
  Age: 73 Year
  Sex: Male
  Weight: 75.9 kg

DRUGS (3)
  1. OBINUTUZUMAB [Suspect]
     Active Substance: OBINUTUZUMAB
     Indication: Chronic lymphocytic leukaemia
     Dosage: 100 MG IV ON C1D1, 900 MG IV ON C1D2, 1000 MG IV ON C1D8 + C1D15, C2-6D1?ON 21/FEB/2022, RECEIVED LA
     Route: 042
     Dates: start: 20211101
  2. VENETOCLAX [Suspect]
     Active Substance: VENETOCLAX
     Indication: Chronic lymphocytic leukaemia
     Dosage: 20 MG PO QD DAYS 1-7 CYCLE 3, 50 MG PO QD DAYS 8-14, CYCLE 3, 100 MG PO QD DAYS 15-21, CYCLE 3, 200
     Route: 048
     Dates: start: 20211228
  3. IBRUTINIB [Suspect]
     Active Substance: IBRUTINIB
     Indication: Chronic lymphocytic leukaemia
     Dosage: 15 CYCLES, ON  19/MAY/2022, RECEIVED LAST DOSE OF IBRUTINIB
     Route: 048
     Dates: start: 20211101

REACTIONS (3)
  - Fatigue [Not Recovered/Not Resolved]
  - Hodgkin^s disease [Not Recovered/Not Resolved]
  - Epstein-Barr virus infection reactivation [Unknown]

NARRATIVE: CASE EVENT DATE: 20220328
